FAERS Safety Report 20084535 (Version 7)
Quarter: 2022Q3

REPORT INFORMATION
  Report Type: Report from Study
  Country: US (occurrence: US)
  Receive Date: 20211118
  Receipt Date: 20220930
  Transmission Date: 20221027
  Serious: No
  Sender: FDA-Public Use
  Company Number: US-NOVARTISTESTPH-NVSC2021US263149

PATIENT
  Age: 73 Year
  Sex: Female

DRUGS (1)
  1. ENTRESTO [Suspect]
     Active Substance: SACUBITRIL\VALSARTAN
     Indication: Product used for unknown indication
     Dosage: 50 MG, BID
     Route: 048
     Dates: start: 20211008

REACTIONS (18)
  - Throat clearing [Unknown]
  - Lip dry [Unknown]
  - Dry mouth [Unknown]
  - Dry throat [Unknown]
  - Increased appetite [Unknown]
  - Weight decreased [Unknown]
  - Contusion [Unknown]
  - Joint swelling [Unknown]
  - Fracture [Recovering/Resolving]
  - Muscular weakness [Unknown]
  - Hypoaesthesia [Unknown]
  - Musculoskeletal stiffness [Unknown]
  - Carpal tunnel syndrome [Unknown]
  - Paraesthesia [Unknown]
  - Mobility decreased [Unknown]
  - Fall [Unknown]
  - Fatigue [Unknown]
  - Hypotension [Unknown]

NARRATIVE: CASE EVENT DATE: 20211125
